FAERS Safety Report 10242884 (Version 3)
Quarter: 2014Q4

REPORT INFORMATION
  Report Type: Spontaneous
  Country: DE (occurrence: DE)
  Receive Date: 20140618
  Receipt Date: 20141027
  Transmission Date: 20150528
  Serious: Yes (Hospitalization, Other)
  Sender: FDA-Public Use
  Company Number: DE-BIOGENIDEC-2014BI042659

PATIENT
  Age: 34 Year
  Sex: Female

DRUGS (3)
  1. TYSABRI [Suspect]
     Active Substance: NATALIZUMAB
     Indication: MULTIPLE SCLEROSIS
     Route: 042
     Dates: start: 20131101, end: 20140401
  2. OMEPRAZOLE. [Concomitant]
     Active Substance: OMEPRAZOLE
     Indication: GASTROOESOPHAGEAL REFLUX DISEASE
  3. CIPROBAY [Concomitant]
     Active Substance: CIPROFLOXACIN
     Indication: ANAL ABSCESS
     Dates: start: 201405

REACTIONS (4)
  - Seroma [Recovered/Resolved]
  - Hypersensitivity [Recovered/Resolved]
  - Lymphopenia [Recovered/Resolved]
  - Anal abscess [Recovered/Resolved]

NARRATIVE: CASE EVENT DATE: 20140401
